FAERS Safety Report 4839952-4 (Version None)
Quarter: 2005Q4

REPORT INFORMATION
  Report Type: 
  Country: None (occurrence: None)
  Receive Date: 20051125
  Receipt Date: 20051114
  Transmission Date: 20060501
  Serious: Yes (Other)
  Sender: FDA-Public Use
  Company Number: 8013413

PATIENT

DRUGS (1)
  1. LEVETIRACETAM [Suspect]

REACTIONS (2)
  - COAGULOPATHY [None]
  - HEPATIC VEIN THROMBOSIS [None]
